FAERS Safety Report 20702144 (Version 1)
Quarter: 2022Q2

REPORT INFORMATION
  Report Type: Spontaneous
  Country: US (occurrence: None)
  Receive Date: 20220411
  Receipt Date: 20220411
  Transmission Date: 20220721
  Serious: Yes (Other)
  Sender: FDA-Public Use
  Company Number: None

PATIENT
  Age: 46 Year
  Sex: Female
  Weight: 63 kg

DRUGS (2)
  1. SUBOXONE [Suspect]
     Active Substance: BUPRENORPHINE HYDROCHLORIDE\NALOXONE HYDROCHLORIDE
     Indication: Drug dependence
     Dosage: FREQUENCY : 3 TIMES A DAY;?
     Route: 048
     Dates: start: 20160401
  2. GABAPENTIN [Concomitant]
     Active Substance: GABAPENTIN

REACTIONS (9)
  - Dental caries [None]
  - Dental caries [None]
  - Tooth loss [None]
  - Toothache [None]
  - Quality of life decreased [None]
  - Tooth fracture [None]
  - Confusional state [None]
  - Depressed mood [None]
  - Feeling abnormal [None]

NARRATIVE: CASE EVENT DATE: 20200401
